FAERS Safety Report 25777160 (Version 1)
Quarter: 2025Q3

REPORT INFORMATION
  Report Type: Spontaneous
  Country: US (occurrence: US)
  Receive Date: 20250909
  Receipt Date: 20250909
  Transmission Date: 20251021
  Serious: No
  Sender: DOMPE FARMACEUTICI
  Company Number: US-FARMAPROD-202410-3542

PATIENT
  Sex: Female

DRUGS (12)
  1. OXERVATE [Suspect]
     Active Substance: CENEGERMIN-BKBJ
     Indication: Neurotrophic keratopathy
     Route: 047
     Dates: start: 20241002
  2. BOTOX [Concomitant]
     Active Substance: ONABOTULINUMTOXINA
  3. VITAMINS [Concomitant]
     Active Substance: VITAMINS
  4. ELDERBERRY IMMUNE HEALTH [Concomitant]
  5. CRANBERRY [Concomitant]
     Active Substance: CRANBERRY
  6. SUCRALFATE [Concomitant]
     Active Substance: SUCRALFATE
  7. PANTOPRAZOLE SODIUM [Concomitant]
     Active Substance: PANTOPRAZOLE SODIUM
  8. METHOCARBAMOL [Concomitant]
     Active Substance: METHOCARBAMOL
  9. COMPAZINE [Concomitant]
     Active Substance: PROCHLORPERAZINE MALEATE
  10. OXYCODONE HYDROCHLORIDE [Concomitant]
     Active Substance: OXYCODONE HYDROCHLORIDE
  11. NURTEC ODT [Concomitant]
     Active Substance: RIMEGEPANT SULFATE
  12. FIORICET WITH CODEINE [Concomitant]
     Active Substance: ACETAMINOPHEN\BUTALBITAL\CAFFEINE\CODEINE PHOSPHATE

REACTIONS (2)
  - Eye pain [Recovered/Resolved]
  - Swelling of eyelid [Not Recovered/Not Resolved]
